FAERS Safety Report 15815350 (Version 1)
Quarter: 2019Q1

REPORT INFORMATION
  Report Type: Spontaneous
  Country: FR (occurrence: FR)
  Receive Date: 20190112
  Receipt Date: 20190112
  Transmission Date: 20190417
  Serious: Yes (Other)
  Sender: FDA-Public Use
  Company Number: FR-AMGEN-FRASP2019004563

PATIENT

DRUGS (2)
  1. VINBLASTINE [Concomitant]
     Active Substance: VINBLASTINE
     Indication: IMMUNE THROMBOCYTOPENIC PURPURA
     Dosage: 5 MG/M2, UNK
  2. ROMIPLOSTIM [Suspect]
     Active Substance: ROMIPLOSTIM
     Indication: IMMUNE THROMBOCYTOPENIC PURPURA
     Dosage: 10 UNK, QWK
     Route: 065

REACTIONS (2)
  - Off label use [Unknown]
  - Thrombocytosis [Unknown]
